FAERS Safety Report 4555832-6 (Version None)
Quarter: 2005Q1

REPORT INFORMATION
  Report Type: 
  Country: None (occurrence: None)
  Receive Date: 20050118
  Receipt Date: 20040720
  Transmission Date: 20050727
  Serious: Yes (Hospitalization)
  Sender: FDA-Public Use
  Company Number: A001-002-006152

PATIENT
  Age: 87 Year
  Sex: Female
  Weight: 52 kg

DRUGS (11)
  1. ARICEPT [Suspect]
     Indication: MEMORY IMPAIRMENT
     Dosage: ORAL
     Route: 048
  2. ACTONEL [Concomitant]
  3. SYNTHROID [Concomitant]
  4. BENICAR [Concomitant]
  5. ZEBETA [Concomitant]
  6. CELEBREX [Concomitant]
  7. LOTREL [Concomitant]
  8. K-DUR 10 [Concomitant]
  9. CALTRATE (CALCIUM CARBONATE) [Concomitant]
  10. XANAX [Concomitant]
  11. LEXAPRO [Concomitant]

REACTIONS (2)
  - NAUSEA [None]
  - SPINAL COMPRESSION FRACTURE [None]
